FAERS Safety Report 6546942-2 (Version None)
Quarter: 2010Q1

REPORT INFORMATION
  Report Type: 
  Country: None (occurrence: None)
  Receive Date: 20100122
  Receipt Date: 20091209
  Transmission Date: 20100710
  Serious: Yes (Hospitalization, Congenital Anomaly)
  Sender: FDA-Public Use
  Company Number: A0681191A

PATIENT
  Sex: Male
  Weight: 3.2 kg

DRUGS (5)
  1. PAXIL [Suspect]
     Indication: DEPRESSION
     Dosage: 20MG PER DAY
     Dates: start: 20011201, end: 20030701
  2. VITAMIN AND MINERAL PRENATAL SUPPLEMENT W/ FOLIC ACID CAP [Concomitant]
  3. MACROBID [Concomitant]
     Dates: start: 20030301, end: 20030301
  4. ARTIFICIAL TEARS [Concomitant]
  5. EFFEXOR [Concomitant]
     Dates: start: 20020901

REACTIONS (7)
  - CONGENITAL HYPOTHYROIDISM [None]
  - DRUG EXPOSURE DURING PREGNANCY [None]
  - EAGLE BARRETT SYNDROME [None]
  - GINGIVAL HYPERPLASIA [None]
  - PULMONARY HYPOPLASIA [None]
  - RENAL DYSPLASIA [None]
  - TALIPES [None]
